FAERS Safety Report 16677806 (Version 2)
Quarter: 2019Q3

REPORT INFORMATION
  Report Type: Report from Study
  Country: US (occurrence: US)
  Receive Date: 20190807
  Receipt Date: 20190822
  Transmission Date: 20191004
  Serious: Yes (Death)
  Sender: FDA-Public Use
  Company Number: US-TAIHO ONCOLOGY  INC-EU-2019-02613

PATIENT
  Age: 55 Year
  Sex: Male
  Weight: 99.3 kg

DRUGS (1)
  1. LONSURF [Suspect]
     Active Substance: TIPIRACIL HYDROCHLORIDE\TRIFLURIDINE
     Indication: COLON CANCER METASTATIC
     Dosage: CURRENT CYCLE NOT REPORTED.
     Route: 048
     Dates: start: 20190531

REACTIONS (6)
  - Pyrexia [Unknown]
  - Apnoea [Unknown]
  - Mental disorder [Unknown]
  - Tachycardia [Unknown]
  - Disease progression [Fatal]
  - Agitation [Unknown]

NARRATIVE: CASE EVENT DATE: 201907
